FAERS Safety Report 20811564 (Version 1)
Quarter: 2022Q2

REPORT INFORMATION
  Report Type: Report from Study
  Country: CA (occurrence: CA)
  Receive Date: 20220510
  Receipt Date: 20220510
  Transmission Date: 20220721
  Serious: Yes (Other)
  Sender: FDA-Public Use
  Company Number: CA-JNJFOC-20210637501

PATIENT
  Sex: Male

DRUGS (1)
  1. IMBRUVICA [Suspect]
     Active Substance: IBRUTINIB
     Indication: Waldenstrom^s macroglobulinaemia
     Dosage: STRENGTH = 140 MG
     Route: 048
     Dates: start: 20190505

REACTIONS (6)
  - Hip surgery [Unknown]
  - Haemorrhage [Unknown]
  - Blood test abnormal [Unknown]
  - Blood pressure decreased [Unknown]
  - Oedema peripheral [Unknown]
  - Anaemia [Unknown]
